FAERS Safety Report 4697768-6 (Version None)
Quarter: 2005Q2

REPORT INFORMATION
  Report Type: 
  Country: None (occurrence: None)
  Receive Date: 20050621
  Receipt Date: 20050610
  Transmission Date: 20051028
  Serious: Yes (Other)
  Sender: FDA-Public Use
  Company Number: 200511176BWH

PATIENT
  Age: 55 Year
  Sex: Male

DRUGS (3)
  1. LEVITRA [Suspect]
     Dosage: 10 + 5 MG TOTAL, DAILY, ORAL
     Route: 048
     Dates: start: 20040101
  2. LEVITRA [Suspect]
     Dosage: 10 + 5 MG TOTAL, DAILY, ORAL
     Route: 048
     Dates: start: 20040101
  3. LISINOPRIL [Concomitant]

REACTIONS (2)
  - PEYRONIE'S DISEASE [None]
  - PRIAPISM [None]
